FAERS Safety Report 14529274 (Version 3)
Quarter: 2018Q2

REPORT INFORMATION
  Report Type: Report from Study
  Country: None (occurrence: US)
  Receive Date: 20180214
  Receipt Date: 20180607
  Transmission Date: 20180711
  Serious: Yes (Hospitalization, Other)
  Sender: FDA-Public Use
  Company Number: US-ABBVIE-18K-163-2255581-00

PATIENT
  Age: 25 Year
  Sex: Female
  Weight: 121.67 kg

DRUGS (2)
  1. HUMIRA [Suspect]
     Active Substance: ADALIMUMAB
     Indication: RHEUMATOID ARTHRITIS
     Route: 058
     Dates: start: 201701
  2. TRAMADOL. [Concomitant]
     Active Substance: TRAMADOL
     Indication: MIGRAINE

REACTIONS (6)
  - Loss of personal independence in daily activities [Recovered/Resolved]
  - Dizziness [Recovering/Resolving]
  - Joint range of motion decreased [Recovered/Resolved]
  - Ear infection [Recovering/Resolving]
  - Seizure [Unknown]
  - Eye movement disorder [Recovered/Resolved]

NARRATIVE: CASE EVENT DATE: 201802
